FAERS Safety Report 6376772-6 (Version None)
Quarter: 2009Q3

REPORT INFORMATION
  Report Type: 
  Country: None (occurrence: None)
  Receive Date: 20090925
  Receipt Date: 20090921
  Transmission Date: 20100115
  Serious: No
  Sender: FDA-Public Use
  Company Number: US-ROXANE LABORATORIES, INC.-2009-RO-00885RO

PATIENT
  Sex: Female
  Weight: 102 kg

DRUGS (15)
  1. LITHIUM CARBONATE [Suspect]
     Indication: MAJOR DEPRESSION
     Dosage: 1200 MG
     Route: 048
     Dates: start: 20090401, end: 20090901
  2. LITHIUM CARBONATE [Suspect]
     Dosage: 900 MG
     Route: 048
     Dates: start: 20090905
  3. LITHIUM CARBONATE [Suspect]
     Dosage: 600 MG
     Route: 048
     Dates: start: 20090911
  4. LITHIUM CARBONATE [Suspect]
     Dosage: 300 MG
     Route: 048
     Dates: start: 20090918
  5. TOPROL-XL [Concomitant]
     Indication: SUPRAVENTRICULAR TACHYCARDIA
     Dosage: 12.5 MG
     Dates: start: 20090916
  6. WELLBUTRIN [Concomitant]
     Indication: MAJOR DEPRESSION
     Dosage: 150 MG
     Dates: start: 20090522
  7. MULTI-VITAMIN [Concomitant]
  8. CALCIUM [Concomitant]
  9. MAGNESIUM [Concomitant]
  10. ASPIRIN [Concomitant]
     Dosage: 83 MG
  11. SYNTHROID [Concomitant]
     Indication: THYROID FUNCTION TEST ABNORMAL
     Dosage: 75 MG
     Dates: start: 20090116
  12. SYNTHROID [Concomitant]
     Indication: THYROID NEOPLASM
  13. ZOCOR [Concomitant]
     Indication: BLOOD CHOLESTEROL ABNORMAL
     Dosage: 20 MG
     Dates: start: 20080812
  14. ZINC [Concomitant]
  15. VITAMIN D [Concomitant]

REACTIONS (10)
  - ANTIPSYCHOTIC DRUG LEVEL ABOVE THERAPEUTIC [None]
  - FATIGUE [None]
  - GAIT DISTURBANCE [None]
  - HYPERHIDROSIS [None]
  - MUSCLE SPASMS [None]
  - PAIN [None]
  - POLLAKIURIA [None]
  - THIRST [None]
  - TREMOR [None]
  - VISION BLURRED [None]
